FAERS Safety Report 12447263 (Version 3)
Quarter: 2017Q1

REPORT INFORMATION
  Report Type: Spontaneous
  Country: JP (occurrence: JP)
  Receive Date: 20160608
  Receipt Date: 20170123
  Transmission Date: 20170428
  Serious: Yes (Hospitalization)
  Sender: FDA-Public Use
  Company Number: JP-ELI_LILLY_AND_COMPANY-JP201606001143

PATIENT
  Age: 70 Year
  Sex: Male

DRUGS (1)
  1. TRULICITY [Suspect]
     Active Substance: DULAGLUTIDE
     Indication: DIABETES MELLITUS
     Dosage: UNK
     Route: 058
     Dates: start: 20150921, end: 20160530

REACTIONS (2)
  - Peritonitis [Recovered/Resolved]
  - Appendicitis perforated [Recovered/Resolved]

NARRATIVE: CASE EVENT DATE: 201605
